FAERS Safety Report 13718542 (Version 6)
Quarter: 2020Q1

REPORT INFORMATION
  Report Type: Spontaneous
  Country: US (occurrence: US)
  Receive Date: 20170705
  Receipt Date: 20200219
  Transmission Date: 20200409
  Serious: Yes (Other)
  Sender: FDA-Public Use
  Company Number: US-PFIZER INC-2017286467

PATIENT
  Age: 54 Year
  Sex: Female
  Weight: 82.8 kg

DRUGS (4)
  1. DILANTIN [Suspect]
     Active Substance: PHENYTOIN
     Indication: PARTIAL SEIZURES
     Dosage: UNK
  2. DILANTIN [Suspect]
     Active Substance: PHENYTOIN
     Indication: EPILEPSY
     Dosage: 100 MG, 3X/DAY (ONE IN MORNING, ONE AT LUNCH, ONE AT BEDTIME)
     Dates: start: 20170707
  3. DILANTIN [Suspect]
     Active Substance: PHENYTOIN
     Indication: GENERALISED ANXIETY DISORDER
     Dosage: 50 MG, 1X/DAY (ONE AT 3 PM)
  4. DILANTIN [Suspect]
     Active Substance: PHENYTOIN
     Indication: SEIZURE

REACTIONS (2)
  - Gait disturbance [Not Recovered/Not Resolved]
  - Toxicity to various agents [Unknown]
